FAERS Safety Report 5381416-6 (Version None)
Quarter: 2007Q3

REPORT INFORMATION
  Report Type: 
  Country: None (occurrence: None)
  Receive Date: 20070709
  Receipt Date: 20070627
  Transmission Date: 20080115
  Serious: Yes (Other)
  Sender: FDA-Public Use
  Company Number: HQWYE835827JUN07

PATIENT
  Age: 36 Year
  Sex: Female

DRUGS (1)
  1. INDERAL [Suspect]
     Route: 048
     Dates: start: 20050901, end: 20051001

REACTIONS (2)
  - LIVER DISORDER [None]
  - URTICARIA [None]
